FAERS Safety Report 11625818 (Version 1)
Quarter: 2015Q4

REPORT INFORMATION
  Report Type: Spontaneous
  Country: US (occurrence: US)
  Receive Date: 20151013
  Receipt Date: 20151013
  Transmission Date: 20160304
  Serious: No
  Sender: FDA-Public Use
  Company Number: US-SAGE PRODUCTS, LLC-1042889

PATIENT
  Age: 81 Year
  Sex: Female
  Weight: 77.27 kg

DRUGS (2)
  1. BLOOD PRESSURE MEDICATION [Concomitant]
     Active Substance: UNSPECIFIED INGREDIENT
  2. CHLORHEXIDINE GLUCONATE. [Suspect]
     Active Substance: CHLORHEXIDINE GLUCONATE
     Indication: PREOPERATIVE CARE
     Route: 061
     Dates: start: 20150908, end: 20150909

REACTIONS (2)
  - Accidental exposure to product [Not Recovered/Not Resolved]
  - Dizziness [Not Recovered/Not Resolved]

NARRATIVE: CASE EVENT DATE: 20150908
